FAERS Safety Report 17270017 (Version 1)
Quarter: 2020Q1

REPORT INFORMATION
  Report Type: Spontaneous
  Country: FR (occurrence: FR)
  Receive Date: 20200114
  Receipt Date: 20200114
  Transmission Date: 20200409
  Serious: Yes (Hospitalization)
  Sender: FDA-Public Use
  Company Number: FR-MYLANLABS-2020M1003764

PATIENT
  Age: 29 Year
  Sex: Female

DRUGS (6)
  1. OFLOCET                            /00731801/ [Suspect]
     Active Substance: OFLOXACIN
     Indication: CYSTITIS
     Dosage: 400 MILLIGRAM, QD
     Route: 048
     Dates: start: 20190920
  2. KEPPRA [Concomitant]
     Active Substance: LEVETIRACETAM
  3. LEPTICUR [Concomitant]
     Active Substance: TROPATEPINE HYDROCHLORIDE
  4. ARIPIPRAZOLE. [Suspect]
     Active Substance: ARIPIPRAZOLE
     Indication: PSYCHIATRIC SYMPTOM
     Dosage: INCONNUE
     Route: 048
  5. VENTOLINE                          /00139502/ [Concomitant]
     Active Substance: ALBUTEROL SULFATE
  6. DIAZEPAM. [Concomitant]
     Active Substance: DIAZEPAM

REACTIONS (1)
  - Generalised tonic-clonic seizure [Recovered/Resolved]

NARRATIVE: CASE EVENT DATE: 20190922
